FAERS Safety Report 26117610 (Version 1)
Quarter: 2025Q4

REPORT INFORMATION
  Report Type: Spontaneous
  Country: US (occurrence: None)
  Receive Date: 20251203
  Receipt Date: 20251203
  Transmission Date: 20260117
  Serious: Yes (Hospitalization)
  Sender: FDA-CTU
  Company Number: None

PATIENT
  Sex: Male

DRUGS (5)
  1. LENALIDOMIDE [Suspect]
     Active Substance: LENALIDOMIDE
     Indication: Plasma cell myeloma
     Dosage: TAKE 1 CAPSULE BY MOUTH ONCE DAILY FOR 21 DAYS ON THEN 7 DAYS OFF.
     Route: 048
     Dates: start: 20251106
  2. ASPIRIN TAB 325MG [Concomitant]
  3. OXYCODONE CAP 5MG [Concomitant]
  4. PANTOPRAZOLE TAB 40MG [Concomitant]
  5. SEROOUEL TAB 100MG [Concomitant]

REACTIONS (2)
  - Femur fracture [None]
  - Therapy interrupted [None]
